FAERS Safety Report 21697847 (Version 1)
Quarter: 2022Q4

REPORT INFORMATION
  Report Type: Spontaneous
  Country: AR (occurrence: AR)
  Receive Date: 20221208
  Receipt Date: 20221208
  Transmission Date: 20230113
  Serious: Yes (Other)
  Sender: FDA-Public Use
  Company Number: AR-PINT-2022-Neratinib-060

PATIENT

DRUGS (4)
  1. NERLYNX [Suspect]
     Active Substance: NERATINIB
     Indication: HER2 positive breast cancer
     Dosage: 120 MG, DAILY
     Route: 048
     Dates: start: 20210719
  2. NERLYNX [Suspect]
     Active Substance: NERATINIB
     Dosage: 40 MG ON THE DAY BEFORE, THE SAME DAY AND THE DAY AFTER THE ADMINISTRATION OF THE ANTIMYCOTIC, TH...
     Route: 048
     Dates: start: 202205
  3. NERLYNX [Suspect]
     Active Substance: NERATINIB
     Dosage: THERAPY INTERVAL: DAILY, 4 PILLSTHE REPORTER STATED THAT THE PATIENT WAS CURRENTLY TAKING 160MG...
     Route: 048
     Dates: start: 20221024
  4. CAPECITABINE [Concomitant]
     Active Substance: CAPECITABINE
     Indication: Product used for unknown indication
     Dosage: 4 CAPECITABINE TABLETS ()

REACTIONS (3)
  - Brain scan abnormal [Unknown]
  - Off label use [Recovered/Resolved]
  - Onychomycosis [Recovered/Resolved]

NARRATIVE: CASE EVENT DATE: 20210719
